FAERS Safety Report 9667740 (Version 1)
Quarter: 2013Q4

REPORT INFORMATION
  Report Type: Spontaneous
  Country: US (occurrence: US)
  Receive Date: 20131104
  Receipt Date: 20131104
  Transmission Date: 20140711
  Serious: No
  Sender: FDA-Public Use
  Company Number: US-ENDO PHARMACEUTICALS INC.-PRED20110009

PATIENT
  Sex: Female

DRUGS (6)
  1. PREDNISONE [Suspect]
     Indication: RASH
     Route: 048
     Dates: start: 20101102
  2. PREDNISONE [Suspect]
     Indication: MUSCLE DISORDER
     Route: 048
  3. PREDNISONE [Suspect]
     Route: 048
  4. PREDNISONE [Suspect]
     Dosage: 25 MG
     Route: 048
  5. METHOTREXATE [Concomitant]
     Indication: PRODUCT USED FOR UNKNOWN INDICATION
     Dates: start: 201103
  6. PLAQUENIL [Concomitant]
     Indication: PRODUCT USED FOR UNKNOWN INDICATION
     Dates: start: 201103

REACTIONS (2)
  - Urticaria [Unknown]
  - Dermatomyositis [Not Recovered/Not Resolved]
